FAERS Safety Report 24439071 (Version 1)
Quarter: 2024Q4

REPORT INFORMATION
  Report Type: Spontaneous
  Country: US (occurrence: US)
  Receive Date: 20241015
  Receipt Date: 20241015
  Transmission Date: 20250114
  Serious: No
  Sender: PFIZER
  Company Number: US-PFIZER INC-202400274758

PATIENT
  Age: 87 Year
  Sex: Male
  Weight: 61.23 kg

DRUGS (1)
  1. PAXLOVID [Suspect]
     Active Substance: NIRMATRELVIR\RITONAVIR
     Indication: COVID-19 treatment
     Dosage: [NIRMATRELVIR 150 MG]/[RITONAVIR 100 MG]
     Dates: start: 20241008

REACTIONS (2)
  - Nocturia [Not Recovered/Not Resolved]
  - Polyuria [Not Recovered/Not Resolved]

NARRATIVE: CASE EVENT DATE: 20241001
